FAERS Safety Report 23192814 (Version 1)
Quarter: 2023Q4

REPORT INFORMATION
  Report Type: Spontaneous
  Country: US (occurrence: None)
  Receive Date: 20231116
  Receipt Date: 20231116
  Transmission Date: 20240109
  Serious: Yes (unspecified)
  Sender: FDA-Public Use
  Company Number: None

PATIENT
  Age: 96 Year
  Sex: Female

DRUGS (1)
  1. DEXMEDETOMIDINE [Suspect]
     Active Substance: DEXMEDETOMIDINE

REACTIONS (10)
  - Incorrect dose administered [None]
  - Device infusion issue [None]
  - Bradycardia [None]
  - Hypoxia [None]
  - Mental status changes [None]
  - Product design issue [None]
  - Device alarm issue [None]
  - Device material issue [None]
  - Device difficult to use [None]
  - Procedural complication [None]

NARRATIVE: CASE EVENT DATE: 20230607
